FAERS Safety Report 8357851-0 (Version None)
Quarter: 2012Q2

REPORT INFORMATION
  Report Type: 
  Country: None (occurrence: None)
  Receive Date: 20120514
  Receipt Date: 20120504
  Transmission Date: 20120825
  Serious: Yes (Hospitalization)
  Sender: FDA-Public Use
  Company Number: US-ABBOTT-12P-163-0932753-00

PATIENT
  Sex: Male

DRUGS (6)
  1. UNKNOWN MEDICATION [Concomitant]
     Indication: ASTHMA
  2. HUMIRA [Suspect]
     Indication: RHEUMATOID ARTHRITIS
     Dosage: TAKES EVERY OTHER THURSDAY NIGHT
     Dates: start: 20111201
  3. UNKNOWN MEDICATION [Concomitant]
     Indication: BLOOD PRESSURE
     Dosage: PILLS
  4. ASTHMA [Concomitant]
     Indication: PRODUCT USED FOR UNKNOWN INDICATION
     Dosage: PILLS
  5. UNKNOWN MEDICATION [Concomitant]
     Indication: ANTICOAGULANT THERAPY
  6. LORTAB [Concomitant]
     Indication: PAIN

REACTIONS (9)
  - MUSCULOSKELETAL STIFFNESS [None]
  - RHEUMATOID ARTHRITIS [None]
  - HYPOAESTHESIA [None]
  - BLOOD SODIUM DECREASED [None]
  - LOSS OF CONSCIOUSNESS [None]
  - MEMORY IMPAIRMENT [None]
  - DRUG INEFFECTIVE [None]
  - UNEVALUABLE EVENT [None]
  - DEVICE MALFUNCTION [None]
